FAERS Safety Report 16408525 (Version 2)
Quarter: 2019Q2

REPORT INFORMATION
  Report Type: Spontaneous
  Country: US (occurrence: US)
  Receive Date: 20190610
  Receipt Date: 20190621
  Transmission Date: 20190711
  Serious: Yes (Other)
  Sender: FDA-Public Use
  Company Number: US-ASTRAZENECA-2018SF27006

PATIENT
  Age: 765 Month
  Sex: Female

DRUGS (27)
  1. PREVACID [Suspect]
     Active Substance: LANSOPRAZOLE
     Route: 065
     Dates: start: 20140101, end: 20171231
  2. TRAMADOL. [Concomitant]
     Active Substance: TRAMADOL
  3. AMOXICILLIN. [Concomitant]
     Active Substance: AMOXICILLIN
  4. DIFLUCAN [Concomitant]
     Active Substance: FLUCONAZOLE
  5. NEURONTIN [Concomitant]
     Active Substance: GABAPENTIN
  6. ZANTAC [Concomitant]
     Active Substance: RANITIDINE HYDROCHLORIDE
  7. LOSARTAN. [Concomitant]
     Active Substance: LOSARTAN
  8. PREVACID 24 HR [Suspect]
     Active Substance: LANSOPRAZOLE
     Route: 065
     Dates: start: 20140101, end: 20171231
  9. TRAMADOL. [Concomitant]
     Active Substance: TRAMADOL
  10. CLONIDINE. [Concomitant]
     Active Substance: CLONIDINE
  11. NEXIUM [Suspect]
     Active Substance: ESOMEPRAZOLE MAGNESIUM
     Route: 048
     Dates: start: 201401, end: 201712
  12. PREVACID 24 HR [Suspect]
     Active Substance: LANSOPRAZOLE
     Route: 065
     Dates: start: 201401, end: 201712
  13. NAPROXEN. [Concomitant]
     Active Substance: NAPROXEN
  14. ALPRAZOLAM. [Concomitant]
     Active Substance: ALPRAZOLAM
  15. PRILOSEC [Suspect]
     Active Substance: OMEPRAZOLE MAGNESIUM
     Route: 048
     Dates: start: 20140101, end: 20171231
  16. PRILOSEC OTC [Suspect]
     Active Substance: OMEPRAZOLE MAGNESIUM
     Route: 048
     Dates: start: 201401, end: 201712
  17. BACLOFEN. [Concomitant]
     Active Substance: BACLOFEN
  18. PREVACID [Suspect]
     Active Substance: LANSOPRAZOLE
     Route: 065
     Dates: start: 201401, end: 201712
  19. OXYCODONE [Concomitant]
     Active Substance: OXYCODONE
  20. MORPHINE [Concomitant]
     Active Substance: MORPHINE
  21. ATENOLOL. [Concomitant]
     Active Substance: ATENOLOL
  22. CELEXA [Concomitant]
     Active Substance: CITALOPRAM HYDROBROMIDE
  23. VENTOLIN [Concomitant]
     Active Substance: ALBUTEROL SULFATE
  24. NEXIUM 24HR [Suspect]
     Active Substance: ESOMEPRAZOLE MAGNESIUM
     Route: 048
     Dates: start: 201401, end: 201712
  25. HYZAAR [Concomitant]
     Active Substance: HYDROCHLOROTHIAZIDE\LOSARTAN POTASSIUM
  26. FUROSEMIDE. [Concomitant]
     Active Substance: FUROSEMIDE
  27. COLACE [Concomitant]
     Active Substance: DOCUSATE SODIUM

REACTIONS (7)
  - Acute kidney injury [Unknown]
  - Dyspepsia [Unknown]
  - Chronic kidney disease [Unknown]
  - End stage renal disease [Unknown]
  - Renal failure [Unknown]
  - Tubulointerstitial nephritis [Unknown]
  - Renal injury [Unknown]

NARRATIVE: CASE EVENT DATE: 201706
